FAERS Safety Report 23965118 (Version 1)
Quarter: 2024Q2

REPORT INFORMATION
  Report Type: Spontaneous
  Country: US (occurrence: US)
  Receive Date: 20240612
  Receipt Date: 20240612
  Transmission Date: 20240716
  Serious: No
  Sender: FDA-Public Use
  Company Number: US-LUPIN PHARMACEUTICALS INC.-2024-04761

PATIENT

DRUGS (1)
  1. ALBUTEROL SULFATE [Suspect]
     Active Substance: ALBUTEROL SULFATE
     Indication: Asthma
     Dosage: UNK, 2-4 PUFFS EVERY 4-6 HOURS
     Dates: start: 202405

REACTIONS (3)
  - Prescription drug used without a prescription [Unknown]
  - Device delivery system issue [Unknown]
  - No adverse event [Unknown]
